FAERS Safety Report 8910711 (Version 1)
Quarter: 2012Q4

REPORT INFORMATION
  Report Type: Spontaneous
  Country: PL (occurrence: None)
  Receive Date: 20121107
  Receipt Date: 20121107
  Transmission Date: 20130627
  Serious: Yes (Hospitalization)
  Sender: FDA-Public Use
  Company Number: FK201203287

PATIENT
  Age: 70 Year
  Sex: Female
  Weight: 73 kg

DRUGS (3)
  1. CARBOPLATIN [Suspect]
     Indication: OVARIAN CANCER
     Dosage: 485 mg, 1 in 3 wk, Intravenous (not otherwise specified)
     Route: 042
     Dates: start: 20110207
  2. PACLITAXEL [Suspect]
     Indication: OVARIAN CANCER
     Dosage: 305 mg, 1 in 3 wk, Intravenous (not otherwise specified)
     Route: 042
     Dates: start: 20110207
  3. MORAB-003 [Suspect]
     Indication: OVARIAN CANCER
     Dosage: 1 in 1 wk, Intravenous (not otherwise specified)
     Route: 042
     Dates: start: 20110207

REACTIONS (2)
  - Anaemia [None]
  - Fatigue [None]
